FAERS Safety Report 10426202 (Version 1)
Quarter: 2014Q3

REPORT INFORMATION
  Report Type: Spontaneous
  Country: US (occurrence: None)
  Receive Date: 20140725
  Receipt Date: 20140725
  Transmission Date: 20150326
  Serious: No
  Sender: FDA-Public Use
  Company Number: AP356-00609-SPO-US

PATIENT
  Age: 67 Year
  Sex: Female
  Weight: 75 kg

DRUGS (4)
  1. BELVIQ [Suspect]
     Active Substance: LORCASERIN HYDROCHLORIDE
     Indication: WEIGHT DECREASED
     Route: 048
     Dates: start: 20140324
  2. TRAMADOL [Concomitant]
     Active Substance: TRAMADOL
  3. METOPROLOL [Concomitant]
     Active Substance: METOPROLOL
  4. IBUPROFEN. [Concomitant]
     Active Substance: IBUPROFEN

REACTIONS (6)
  - Arthralgia [None]
  - Fatigue [None]
  - Drug effect decreased [None]
  - Restlessness [None]
  - Asthenia [None]
  - Dizziness [None]

NARRATIVE: CASE EVENT DATE: 201403
